FAERS Safety Report 8325188-1 (Version None)
Quarter: 2012Q2

REPORT INFORMATION
  Report Type: 
  Country: None (occurrence: None)
  Receive Date: 20120501
  Receipt Date: 20120419
  Transmission Date: 20120825
  Serious: Yes (Hospitalization, Other)
  Sender: FDA-Public Use
  Company Number: US-AMGEN-USASP2012025050

PATIENT
  Age: 60 Year
  Sex: Male

DRUGS (3)
  1. HUMIRA [Concomitant]
     Indication: RHEUMATOID ARTHRITIS
     Dosage: 40 MG/0.8ML, ONCE IN TWO WEEKS
     Route: 058
     Dates: start: 20110201, end: 20110301
  2. ENBREL [Suspect]
     Indication: RHEUMATOID ARTHRITIS
     Dosage: UNK
  3. METHOTREXATE [Concomitant]
     Indication: RHEUMATOID ARTHRITIS
     Dosage: UNK

REACTIONS (8)
  - RHEUMATOID ARTHRITIS [None]
  - RASH [None]
  - OPEN WOUND [None]
  - ARTHRALGIA [None]
  - BURSITIS [None]
  - BURSA DISORDER [None]
  - IMPAIRED HEALING [None]
  - DRUG INEFFECTIVE [None]
